FAERS Safety Report 10177599 (Version 1)
Quarter: 2014Q2

REPORT INFORMATION
  Report Type: Spontaneous
  Country: CN (occurrence: CN)
  Receive Date: 20140516
  Receipt Date: 20140516
  Transmission Date: 20141212
  Serious: Yes (Other)
  Sender: FDA-Public Use
  Company Number: PHHY2014CN059285

PATIENT
  Age: 65 Year
  Sex: Male
  Weight: 55 kg

DRUGS (1)
  1. LOTENSIN [Suspect]
     Indication: HYPERTENSION
     Dosage: 10 MG, QD
     Route: 048
     Dates: start: 20130312

REACTIONS (2)
  - Leukopenia [Recovering/Resolving]
  - Granulocyte count decreased [Recovering/Resolving]
